FAERS Safety Report 7538240-5 (Version None)
Quarter: 2011Q2

REPORT INFORMATION
  Report Type: 
  Country: None (occurrence: None)
  Receive Date: 20110609
  Receipt Date: 20070305
  Transmission Date: 20111010
  Serious: Yes (Other)
  Sender: FDA-Public Use
  Company Number: PHMT2006CA02173

PATIENT
  Sex: Female

DRUGS (3)
  1. CLOZAPINE [Suspect]
     Dosage: UNK, UNK
     Route: 048
     Dates: start: 20050414, end: 20070305
  2. CHEMOTHERAPEUTICS NOS [Concomitant]
     Dosage: UNK
  3. RADIATION TREATMENT [Concomitant]
     Dosage: UNK

REACTIONS (2)
  - DRUG INEFFECTIVE [None]
  - BREAST CANCER [None]
